FAERS Safety Report 14258189 (Version 4)
Quarter: 2019Q3

REPORT INFORMATION
  Report Type: Spontaneous
  Country: JP (occurrence: JP)
  Receive Date: 20171207
  Receipt Date: 20190813
  Transmission Date: 20191004
  Serious: Yes (Death, Hospitalization, Other)
  Sender: FDA-Public Use
  Company Number: JP-009507513-1711JPN002810J

PATIENT
  Age: 73 Year
  Sex: Male
  Weight: 63 kg

DRUGS (5)
  1. CIBENZOLINE SUCCINATE [Suspect]
     Active Substance: CIFENLINE SUCCINATE
     Indication: ATRIAL FIBRILLATION
     Dosage: 50 MG, TID
     Route: 048
     Dates: start: 20170901
  2. KEYTRUDA [Suspect]
     Active Substance: PEMBROLIZUMAB
     Indication: LUNG ADENOCARCINOMA
     Dosage: 200 MG, Q3W
     Route: 041
     Dates: start: 20170807, end: 20170828
  3. NIKORANMART [Suspect]
     Active Substance: NICORANDIL
     Indication: ATRIAL FIBRILLATION
     Dosage: 5 MG, TID
     Route: 048
     Dates: start: 20170901
  4. TAKECAB [Suspect]
     Active Substance: VONOPRAZAN FUMURATE
     Indication: GASTRITIS
     Dosage: 20 MG, QD
     Route: 048
     Dates: start: 20170904
  5. VERAPAMIL HYDROCHLORIDE. [Suspect]
     Active Substance: VERAPAMIL HYDROCHLORIDE
     Indication: ATRIAL FIBRILLATION
     Dosage: 40 MG, BID
     Route: 048
     Dates: start: 20170904

REACTIONS (5)
  - Pneumonia bacterial [Unknown]
  - Arrhythmia [Unknown]
  - Interstitial lung disease [Fatal]
  - Atrial fibrillation [Unknown]
  - Dyspnoea [Unknown]

NARRATIVE: CASE EVENT DATE: 20170830
